FAERS Safety Report 16318154 (Version 1)
Quarter: 2019Q2

REPORT INFORMATION
  Report Type: Spontaneous
  Country: FR (occurrence: FR)
  Receive Date: 20190516
  Receipt Date: 20190516
  Transmission Date: 20190711
  Serious: Yes (Disabling)
  Sender: FDA-Public Use
  Company Number: FR-ABBVIE-19P-056-2784510-00

PATIENT
  Age: 60 Year
  Sex: Female
  Weight: 52 kg

DRUGS (2)
  1. ENANTONE LP [Suspect]
     Active Substance: LEUPROLIDE ACETATE
     Indication: GENITAL HAEMORRHAGE
     Dosage: UNK
     Route: 058
     Dates: start: 200808, end: 2012
  2. SURGESTONE [Concomitant]
     Active Substance: PROMEGESTONE
     Indication: DYSMENORRHOEA
     Dosage: UNK
     Route: 048
     Dates: start: 200310, end: 200505

REACTIONS (1)
  - Osteoporosis [Not Recovered/Not Resolved]

NARRATIVE: CASE EVENT DATE: 20190212
